FAERS Safety Report 25567456 (Version 1)
Quarter: 2025Q3

REPORT INFORMATION
  Report Type: Spontaneous
  Country: CN (occurrence: CN)
  Receive Date: 20250716
  Receipt Date: 20250716
  Transmission Date: 20251020
  Serious: Yes (Other)
  Sender: PFIZER
  Company Number: CN-MLMSERVICE-20250708-PI564419-00286-5

PATIENT
  Age: 66 Year
  Sex: Female

DRUGS (7)
  1. PAXLOVID [Suspect]
     Active Substance: NIRMATRELVIR\RITONAVIR
     Indication: COVID-19 treatment
     Dosage: [NIRMATRELVIR 150 MG]/[RITONAVIR 100 MG]; 2X/DAY
     Dates: start: 20230103, end: 20230104
  2. PAXLOVID [Suspect]
     Active Substance: NIRMATRELVIR\RITONAVIR
     Dosage: [NIRMATRELVIR 150 MG]/[RITONAVIR 100 MG]; 1X/DAY FOR DAYS 2-5
     Dates: start: 20230105, end: 20230108
  3. CEFTAZIDIME [Concomitant]
     Active Substance: CEFTAZIDIME
     Indication: Anti-infective therapy
     Dosage: 1 G, Q8H
     Route: 041
     Dates: start: 20221231
  4. DI YU SHENG BAI [Concomitant]
     Indication: White blood cell count decreased
     Dates: start: 20221231
  5. LEUCOGEN [Concomitant]
     Active Substance: LEUCOGEN
     Indication: White blood cell count decreased
     Dates: start: 20221231
  6. PITAVASTATIN CALCIUM [Concomitant]
     Active Substance: PITAVASTATIN CALCIUM
     Indication: Lipid management
     Dosage: 2 MG, 1X/DAY(HS)
     Dates: start: 20230101
  7. IMMUNE GLOBULIN NOS [Concomitant]
     Active Substance: IMMUNE GLOBULIN NOS
     Indication: White blood cell count decreased
     Dosage: 200 MG, 1X/DAY
     Route: 042
     Dates: start: 20230101

REACTIONS (4)
  - Abdominal pain [Recovering/Resolving]
  - Off label use [Unknown]
  - Off label use [Unknown]
  - Product use issue [Unknown]

NARRATIVE: CASE EVENT DATE: 20230103
